FAERS Safety Report 17213539 (Version 1)
Quarter: 2020Q1

REPORT INFORMATION
  Report Type: Spontaneous
  Country: US (occurrence: US)
  Receive Date: 20191227
  Receipt Date: 20191227
  Transmission Date: 20200409
  Serious: No
  Sender: FDA-Public Use
  Company Number: None

PATIENT
  Age: 71 Year
  Sex: Male

DRUGS (1)
  1. ISAVUCONAZONIUM [Suspect]
     Active Substance: ISAVUCONAZONIUM
     Dosage: ?          OTHER FREQUENCY:Q8H X 6, THEN QDAY;?

REACTIONS (3)
  - Diarrhoea [None]
  - Dehydration [None]
  - Renal failure [None]

NARRATIVE: CASE EVENT DATE: 20190802
